FAERS Safety Report 5467467-1 (Version None)
Quarter: 2007Q3

REPORT INFORMATION
  Report Type: 
  Country: None (occurrence: None)
  Receive Date: 20070925
  Receipt Date: 20070910
  Transmission Date: 20080115
  Serious: Yes (Other)
  Sender: FDA-Public Use
  Company Number: FR-ELI_LILLY_AND_COMPANY-FR200704002272

PATIENT
  Age: 56 Year
  Sex: Female
  Weight: 64 kg

DRUGS (5)
  1. EVISTA [Suspect]
     Indication: OSTEOPOROSIS
     Dosage: 60 MG, DAILY (1/D)
     Route: 048
     Dates: start: 20041001, end: 20070330
  2. ESTREVA [Concomitant]
     Dosage: UNK, UNK
     Route: 062
     Dates: start: 20020101, end: 20070401
  3. CALCIUM W/VITAMIN D NOS [Concomitant]
  4. VERATRAN [Concomitant]
     Indication: ANXIETY
     Dosage: 1 D/F, EACH EVENING
     Route: 048
  5. DAFLON [Concomitant]
     Indication: SENSATION OF HEAVINESS
     Dosage: 2 D/F, DAILY (1/D)
     Route: 048
     Dates: end: 20060901

REACTIONS (1)
  - ISCHAEMIC STROKE [None]
